FAERS Safety Report 14046572 (Version 1)
Quarter: 2017Q4

REPORT INFORMATION
  Report Type: Spontaneous
  Country: US (occurrence: None)
  Receive Date: 20171005
  Receipt Date: 20171005
  Transmission Date: 20180321
  Serious: No
  Sender: FDA-Public Use
  Company Number: None

PATIENT
  Age: 53 Year
  Sex: Female

DRUGS (1)
  1. COSENTYX [Suspect]
     Active Substance: SECUKINUMAB

REACTIONS (8)
  - Psoriasis [None]
  - Therapy cessation [None]
  - Blister [None]
  - Dysgeusia [None]
  - Anxiety [None]
  - Hypophagia [None]
  - Depression [None]
  - Nausea [None]

NARRATIVE: CASE EVENT DATE: 20171003
